FAERS Safety Report 22387174 (Version 1)
Quarter: 2023Q2

REPORT INFORMATION
  Report Type: Spontaneous
  Country: SE (occurrence: SE)
  Receive Date: 20230531
  Receipt Date: 20230531
  Transmission Date: 20230722
  Serious: Yes (Life-Threatening, Hospitalization)
  Sender: FDA-Public Use
  Company Number: None

PATIENT
  Age: 28 Year
  Sex: Female

DRUGS (3)
  1. FLUOXETINE [Suspect]
     Active Substance: FLUOXETINE HYDROCHLORIDE
     Indication: Anxiety
     Route: 065
     Dates: start: 20230420, end: 20230426
  2. DIENOGEST\ETHINYL ESTRADIOL [Suspect]
     Active Substance: DIENOGEST\ETHINYL ESTRADIOL
     Indication: Dysmenorrhoea
     Dosage: FOR ACTIVE INGREDIENT ETHINYLESTRADIOL THE STRENGTH IS .03 MILLIGRAMS.?FOR ACTIVE INGREDIENT DIENOGE
     Dates: start: 2022, end: 20230426
  3. ATARAX [Concomitant]
     Active Substance: HYDROXYZINE HYDROCHLORIDE
     Indication: Product used for unknown indication
     Dosage: 1 VB MAX X 2?FOR ACTIVE INGREDIENT HYDROXYZINE THE STRENGTH IS 21 MILLIGRAMS.?FOR ACTIVE INGREDIENT
     Dates: start: 20230420

REACTIONS (1)
  - Cerebral venous sinus thrombosis [Recovering/Resolving]

NARRATIVE: CASE EVENT DATE: 20230426
